FAERS Safety Report 7959105-0 (Version None)
Quarter: 2011Q4

REPORT INFORMATION
  Report Type: 
  Country: None (occurrence: None)
  Receive Date: 20111206
  Receipt Date: 20111206
  Transmission Date: 20120403
  Serious: Yes (Death, Life-Threatening, Hospitalization)
  Sender: FDA-Public Use
  Company Number: None

PATIENT
  Age: 61 Year
  Sex: Male
  Weight: 81.193 kg

DRUGS (21)
  1. NOVO FLEXPEN [Concomitant]
  2. OMEPRAZOLE [Concomitant]
  3. ALLOPURINOL [Concomitant]
  4. AMLODIPINE BESYLATE [Concomitant]
  5. METOPROLOL TARTRATE [Concomitant]
  6. TELAPREVIR [Suspect]
     Indication: HEPATIC FIBROSIS
     Dosage: 750 MG
     Route: 048
     Dates: start: 20111027, end: 20111127
  7. TELAPREVIR [Suspect]
     Indication: HEPATITIS C
     Dosage: 750 MG
     Route: 048
     Dates: start: 20111027, end: 20111127
  8. INSULIN ASPART [Concomitant]
  9. INSULIN,GLARGINE [Concomitant]
  10. PEGINTERFERON ALFA-2A [Concomitant]
     Route: 058
  11. TACROLIMUS [Concomitant]
  12. EPOETIN ALFA,RECOMB [Concomitant]
  13. SOLOSTAR [Concomitant]
  14. RIBAVIRIN [Concomitant]
  15. TELAPREVIR [Concomitant]
  16. FOLIC ACID [Concomitant]
  17. FISH OIL [Concomitant]
  18. SOLOSTAR [Concomitant]
  19. RIBAVIRIN [Concomitant]
  20. CLONIDINE HCL [Concomitant]
  21. ASPIRIN [Concomitant]
     Route: 048

REACTIONS (8)
  - SHOCK [None]
  - HYPOXIA [None]
  - RESPIRATORY FAILURE [None]
  - OFF LABEL USE [None]
  - RENAL FAILURE ACUTE [None]
  - DIARRHOEA [None]
  - LACTIC ACIDOSIS [None]
  - ACUTE RESPIRATORY DISTRESS SYNDROME [None]
